FAERS Safety Report 10164815 (Version 1)
Quarter: 2014Q2

REPORT INFORMATION
  Report Type: Spontaneous
  Country: US (occurrence: US)
  Receive Date: 20140510
  Receipt Date: 20140510
  Transmission Date: 20141212
  Serious: No
  Sender: FDA-Public Use
  Company Number: US-BRISTOL-MYERS SQUIBB COMPANY-20192944

PATIENT
  Age: 69 Year
  Sex: Male

DRUGS (8)
  1. BYDUREON [Suspect]
     Dates: start: 20140107
  2. OMEPRAZOLE [Concomitant]
  3. SIMVASTATIN [Concomitant]
  4. ALPRAZOLAM [Concomitant]
  5. MELOXICAM [Concomitant]
  6. DOXYCYCLINE [Concomitant]
  7. NAPROXEN [Concomitant]
  8. GLIMEPIRIDE [Concomitant]

REACTIONS (4)
  - Injection site reaction [Unknown]
  - Injection site erythema [Unknown]
  - Injection site swelling [Unknown]
  - Injection site pruritus [Unknown]
